FAERS Safety Report 18757761 (Version 2)
Quarter: 2021Q1

REPORT INFORMATION
  Report Type: Report from Study
  Country: None (occurrence: CA)
  Receive Date: 20210119
  Receipt Date: 20210208
  Transmission Date: 20210419
  Serious: Yes (Death, Hospitalization, Other)
  Sender: FDA-Public Use
  Company Number: CA-ABBVIE-21K-028-3736669-00

PATIENT
  Age: 79 Year
  Sex: Male

DRUGS (1)
  1. LUPRON DEPOT [Suspect]
     Active Substance: LEUPROLIDE ACETATE
     Indication: PROSTATE CANCER
     Route: 030
     Dates: start: 20200522

REACTIONS (10)
  - Delirium [Unknown]
  - Abdominal pain [Unknown]
  - Atrial fibrillation [Unknown]
  - Ejection fraction abnormal [Unknown]
  - Ventricular tachycardia [Unknown]
  - Multiple organ dysfunction syndrome [Unknown]
  - Lethargy [Unknown]
  - Cardiomyopathy [Unknown]
  - Cardiac failure [Fatal]
  - Hypotension [Unknown]

NARRATIVE: CASE EVENT DATE: 20210114
